FAERS Safety Report 26019060 (Version 1)
Quarter: 2025Q4

REPORT INFORMATION
  Report Type: Report from Study
  Country: CN (occurrence: CN)
  Receive Date: 20251110
  Receipt Date: 20251110
  Transmission Date: 20260118
  Serious: Yes (Other)
  Sender: ROCHE
  Company Number: CN-ROCHE-10000209498

PATIENT
  Age: 61 Year
  Sex: Female

DRUGS (1)
  1. GLOFITAMAB [Suspect]
     Active Substance: GLOFITAMAB
     Indication: Diffuse large B-cell lymphoma
     Route: 042
     Dates: start: 20240708

REACTIONS (4)
  - Asthenia [Recovered/Resolved]
  - Haemorrhoids [Recovered/Resolved]
  - Pneumonia [Unknown]
  - Nasopharyngitis [Recovered/Resolved]
